FAERS Safety Report 4660044-1 (Version None)
Quarter: 2005Q2

REPORT INFORMATION
  Report Type: 
  Country: None (occurrence: None)
  Receive Date: 20050512
  Receipt Date: 20050422
  Transmission Date: 20051028
  Serious: Yes (Other)
  Sender: FDA-Public Use
  Company Number: CA-AMGEN-US128764

PATIENT
  Sex: Female
  Weight: 59.5 kg

DRUGS (2)
  1. ENBREL [Suspect]
     Indication: RHEUMATOID ARTHRITIS
     Route: 058
     Dates: start: 20030401, end: 20050401
  2. PLAQUENIL [Concomitant]
     Dates: start: 19961201

REACTIONS (1)
  - BREAST CANCER [None]
